FAERS Safety Report 6275419-7 (Version None)
Quarter: 2009Q3

REPORT INFORMATION
  Report Type: 
  Country: None (occurrence: None)
  Receive Date: 20090721
  Receipt Date: 20090713
  Transmission Date: 20100115
  Serious: Yes (Hospitalization, Other)
  Sender: FDA-Public Use
  Company Number: US-AMGEN-KDL352734

PATIENT
  Sex: Male
  Weight: 79 kg

DRUGS (14)
  1. ARANESP [Suspect]
     Indication: RENAL FAILURE CHRONIC
     Dates: start: 20040501, end: 20090624
  2. COUMADIN [Concomitant]
  3. ISOSORBIDE [Concomitant]
  4. CARVEDILOL [Concomitant]
  5. DOXAZOSIN MESYLATE [Concomitant]
  6. HYDRALAZINE HCL [Concomitant]
  7. SINGULAIR [Concomitant]
  8. RENAGEL [Concomitant]
  9. ALLOPURINOL [Concomitant]
  10. OMEPRAZOLE [Concomitant]
  11. LUPRON [Concomitant]
  12. HECTORAL [Concomitant]
  13. FERROUS GLUCONATE [Concomitant]
  14. IRON DEXTRAN [Concomitant]

REACTIONS (6)
  - ATRIAL FIBRILLATION [None]
  - CHRONIC OBSTRUCTIVE PULMONARY DISEASE [None]
  - MICROCYTIC ANAEMIA [None]
  - PROSTATE CANCER [None]
  - THERAPEUTIC RESPONSE DECREASED [None]
  - THROMBOCYTOPENIA [None]
